FAERS Safety Report 4313137-2 (Version None)
Quarter: 2004Q1

REPORT INFORMATION
  Report Type: 
  Country: None (occurrence: None)
  Receive Date: 20040304
  Receipt Date: 20040218
  Transmission Date: 20041129
  Serious: Yes (Hospitalization, Other)
  Sender: FDA-Public Use
  Company Number: DE_040112745

PATIENT
  Age: 41 Year
  Sex: Male

DRUGS (1)
  1. CIALIS [Suspect]
     Dosage: 20 MG/AS NEEDED
     Dates: start: 20030715, end: 20030915

REACTIONS (18)
  - ALANINE AMINOTRANSFERASE INCREASED [None]
  - APLASTIC ANAEMIA [None]
  - ARTHRITIS INFECTIVE [None]
  - ARTHROPATHY [None]
  - AUTOIMMUNE HEPATITIS [None]
  - BONE MARROW DEPRESSION [None]
  - EPSTEIN-BARR VIRUS ANTIGEN POSITIVE [None]
  - GAMMA-GLUTAMYLTRANSFERASE INCREASED [None]
  - INFECTION [None]
  - INFLAMMATION [None]
  - INFLUENZA [None]
  - JOINT SWELLING [None]
  - LIVER DISORDER [None]
  - MYELODYSPLASTIC SYNDROME [None]
  - PAIN IN EXTREMITY [None]
  - PANCYTOPENIA [None]
  - PYREXIA [None]
  - THROMBOCYTOPENIA [None]
